FAERS Safety Report 20145524 (Version 2)
Quarter: 2022Q1

REPORT INFORMATION
  Report Type: Spontaneous
  Country: US (occurrence: US)
  Receive Date: 20211203
  Receipt Date: 20220310
  Transmission Date: 20220424
  Serious: Yes (Other)
  Sender: FDA-Public Use
  Company Number: US-PFIZER INC-202101655059

PATIENT
  Age: 80 Year
  Sex: Female
  Weight: 106.59 kg

DRUGS (14)
  1. VYNDAMAX [Suspect]
     Active Substance: TAFAMIDIS
     Indication: Dyspnoea
     Dosage: 61 MG, 1X/DAY
     Dates: start: 202109
  2. VYNDAMAX [Suspect]
     Active Substance: TAFAMIDIS
     Indication: Heart valve replacement
  3. VYNDAMAX [Suspect]
     Active Substance: TAFAMIDIS
     Indication: Cardiac disorder
  4. SIMVASTATIN [Concomitant]
     Active Substance: SIMVASTATIN
     Dosage: TAKES IT AT NIGHT
  5. ASPIRIN [Concomitant]
     Active Substance: ASPIRIN
     Dosage: UNK
  6. POTASSIUM CHLORIDE [Concomitant]
     Active Substance: POTASSIUM CHLORIDE
     Dosage: 20 MEQ
  7. METOPROLOL [Concomitant]
     Active Substance: METOPROLOL
     Dosage: 25 MG
  8. QUINAPRIL HCT [Concomitant]
     Dosage: 20-25 MG
  9. FLUTICASONE [Concomitant]
     Active Substance: FLUTICASONE
     Dosage: 2 SPRAYS IN NOSTRILS AS NEEDED
  10. MAGNESIUM [Concomitant]
     Active Substance: MAGNESIUM
     Dosage: 400 MG, 1X/DAY
  11. CALCIUM [Concomitant]
     Active Substance: CALCIUM
     Dosage: 600 MG EVERY OTHER DAY
  12. CHOLECALCIFEROL [Concomitant]
     Active Substance: CHOLECALCIFEROL
     Dosage: ONE A DAY
  13. VITAMIN C [Concomitant]
     Active Substance: ASCORBIC ACID
     Dosage: 1000 MG, 1X/DAY
  14. FISH OIL\OMEGA-3 FATTY ACIDS [Concomitant]
     Active Substance: FISH OIL\OMEGA-3 FATTY ACIDS
     Dosage: ONCE A DAY

REACTIONS (4)
  - Dementia [Not Recovered/Not Resolved]
  - Amnesia [Not Recovered/Not Resolved]
  - Disturbance in attention [Unknown]
  - Off label use [Unknown]

NARRATIVE: CASE EVENT DATE: 20210901
